FAERS Safety Report 5523891-X (Version None)
Quarter: 2007Q4

REPORT INFORMATION
  Report Type: 
  Country: None (occurrence: None)
  Receive Date: 20071121
  Receipt Date: 20071115
  Transmission Date: 20080405
  Serious: Yes (Hospitalization)
  Sender: FDA-Public Use
  Company Number: US-SHR-US-2007-026230

PATIENT
  Age: 76 Year
  Sex: Female

DRUGS (4)
  1. BETASERON [Suspect]
     Indication: RELAPSING-REMITTING MULTIPLE SCLEROSIS
     Route: 058
     Dates: start: 20030927, end: 20050923
  2. BETASERON [Suspect]
     Route: 058
     Dates: start: 20060501, end: 20070316
  3. BETASERON [Suspect]
     Route: 058
     Dates: start: 20070628
  4. BETASERON [Suspect]
     Route: 058
     Dates: start: 20051127, end: 20060203

REACTIONS (4)
  - DEHYDRATION [None]
  - DIARRHOEA [None]
  - FEELING HOT [None]
  - MALAISE [None]
